FAERS Safety Report 6936063-9 (Version None)
Quarter: 2010Q3

REPORT INFORMATION
  Report Type: 
  Country: None (occurrence: None)
  Receive Date: 20100819
  Receipt Date: 20100819
  Transmission Date: 20110219
  Serious: Yes (Life-Threatening, Hospitalization, Disabling, Other)
  Sender: FDA-Public Use
  Company Number: None

PATIENT
  Sex: Male
  Weight: 79.3795 kg

DRUGS (1)
  1. BENICAR [Suspect]
     Dosage: 5MG 1 DAILEY

REACTIONS (4)
  - DEHYDRATION [None]
  - NAUSEA [None]
  - RENAL DISORDER [None]
  - WEIGHT DECREASED [None]
